FAERS Safety Report 7268957-1 (Version None)
Quarter: 2011Q1

REPORT INFORMATION
  Report Type: 
  Country: None (occurrence: None)
  Receive Date: 20110201
  Receipt Date: 20110127
  Transmission Date: 20110831
  Serious: Yes (Life-Threatening, Hospitalization, Other)
  Sender: FDA-Public Use
  Company Number: JP-PFIZER INC-2011007379

PATIENT
  Age: 78 Year
  Sex: Female
  Weight: 42 kg

DRUGS (17)
  1. WARFARIN [Concomitant]
     Indication: CEREBRAL INFARCTION
     Dosage: 2 MG, 2X/DAY
     Route: 048
     Dates: start: 20091205, end: 20101213
  2. MICARDIS [Concomitant]
     Indication: HYPERTENSION
     Dosage: 40 MG, 1X/DAY
     Route: 048
     Dates: start: 20091215, end: 20101213
  3. TEGRETOL [Concomitant]
     Indication: OCCIPITAL NEURALGIA
     Dosage: 50 MG, 1X/DAY
     Route: 048
     Dates: start: 20101026, end: 20101213
  4. ADALAT CC [Concomitant]
     Indication: HYPERTENSION
     Dosage: 20 MG, 1X/DAY
     Route: 048
     Dates: start: 20101020, end: 20101213
  5. NATRIX [Concomitant]
     Indication: HYPERTENSION
     Dosage: 1 MG, 1X/DAY
     Route: 048
     Dates: start: 20091205, end: 20101213
  6. ARTIST [Concomitant]
     Indication: HYPERTENSION
     Dosage: 10 MG, 1X/DAY
     Route: 048
     Dates: start: 20091215, end: 20101213
  7. PHENOBAL [Concomitant]
     Indication: CONVULSION
     Dosage: 25 MG, 2X/DAY
     Route: 048
     Dates: start: 20100809, end: 20101213
  8. CINAL [Concomitant]
     Dosage: 50 MG, 2X/DAY
     Route: 048
     Dates: start: 20100809, end: 20101213
  9. ZOLOFT [Suspect]
     Indication: DEPRESSION
     Dosage: 25 MG, 2X/DAY
     Route: 048
     Dates: start: 20101127, end: 20101213
  10. AMOBAN [Concomitant]
     Indication: INSOMNIA
     Dosage: 7.5 MG, 1X/DAY
     Route: 048
     Dates: start: 20101127, end: 20101213
  11. OLMETEC [Concomitant]
     Indication: HYPERTENSION
     Dosage: 20 MG, 1X/DAY
     Route: 048
     Dates: start: 20091215, end: 20101213
  12. ZOLOFT [Suspect]
     Indication: INSOMNIA
     Dosage: 25 MG, 1X/DAY
     Route: 048
     Dates: start: 20101127, end: 20101201
  13. ROCEPHIN [Concomitant]
     Dosage: 1 G, 1X/DAY
     Dates: start: 20101128, end: 20101203
  14. EPLERENONE [Concomitant]
     Indication: HYPERTENSION
     Dosage: 25 MG, 1X/DAY
     Route: 048
     Dates: start: 20100825, end: 20101213
  15. NITOROL R [Concomitant]
     Indication: HYPERTENSION
     Dosage: 20 MG, 2X/DAY
     Route: 048
     Dates: start: 20091215, end: 20101213
  16. MAXIPIME [Concomitant]
     Dosage: 1 G, 1X/DAY
     Route: 041
     Dates: start: 20101213, end: 20101216
  17. SIGMART [Concomitant]
     Indication: ANGINA PECTORIS
     Dosage: 5 MG, 2X/DAY
     Route: 048
     Dates: start: 20091205, end: 20101213

REACTIONS (6)
  - WHEEZING [None]
  - DYSPNOEA [None]
  - STEVENS-JOHNSON SYNDROME [None]
  - BACTERIAL INFECTION [None]
  - FALL [None]
  - LIP INJURY [None]
